FAERS Safety Report 6199321-4 (Version None)
Quarter: 2009Q2

REPORT INFORMATION
  Report Type: 
  Country: None (occurrence: None)
  Receive Date: 20090519
  Receipt Date: 20090519
  Transmission Date: 20091009
  Serious: Yes (Other)
  Sender: FDA-Public Use
  Company Number: None

PATIENT
  Age: 44 Year
  Sex: Female
  Weight: 63.05 kg

DRUGS (11)
  1. ALVESCO [Suspect]
     Indication: ASTHMA
     Dosage: 80MCG 2X DAY INHAL
     Dates: start: 20090515, end: 20090518
  2. TRAMADOL HCL [Concomitant]
  3. FLECTOR [Concomitant]
  4. SYNTHROID [Concomitant]
  5. ZYRTEC [Concomitant]
  6. CYCLOBENZAPRINE [Concomitant]
  7. B COMPLEX VITAMINS [Concomitant]
  8. COQ10 [Concomitant]
  9. BROMELAIN [Concomitant]
  10. STINGING NETTLE [Concomitant]
  11. NASALCROM [Concomitant]

REACTIONS (6)
  - COGNITIVE DISORDER [None]
  - CONFUSIONAL STATE [None]
  - DIZZINESS [None]
  - DYSPHASIA [None]
  - IRRITABILITY [None]
  - MEMORY IMPAIRMENT [None]
